FAERS Safety Report 4919988-5 (Version None)
Quarter: 2006Q1

REPORT INFORMATION
  Report Type: 
  Country: None (occurrence: None)
  Receive Date: 20060217
  Receipt Date: 20060210
  Transmission Date: 20060701
  Serious: Yes (Death, Hospitalization)
  Sender: FDA-Public Use
  Company Number: 144076USA

PATIENT
  Age: 56 Year
  Sex: Female

DRUGS (1)
  1. COPAXONE [Suspect]
     Indication: MULTIPLE SCLEROSIS
     Dates: start: 20030101, end: 20051201

REACTIONS (4)
  - HAEMATURIA [None]
  - LUNG NEOPLASM [None]
  - METASTASIS [None]
  - RENAL CELL CARCINOMA RECURRENT [None]
